FAERS Safety Report 4461432-9 (Version None)
Quarter: 2004Q3

REPORT INFORMATION
  Report Type: 
  Country: None (occurrence: None)
  Receive Date: 20040928
  Receipt Date: 20040923
  Transmission Date: 20050211
  Serious: Yes (Disabling)
  Sender: FDA-Public Use
  Company Number: US-MERCK-0409USA02072

PATIENT
  Age: 79 Year
  Sex: Female

DRUGS (5)
  1. ZYRTEC [Concomitant]
     Route: 065
  2. NASONEX [Concomitant]
     Route: 065
  3. SINGULAIR [Suspect]
     Indication: ASTHMA
     Route: 048
     Dates: start: 19990101
  4. PREDNISONE [Concomitant]
     Route: 065
  5. SEREVENT DISK [Concomitant]
     Route: 065

REACTIONS (4)
  - ABDOMINAL PAIN UPPER [None]
  - CONTUSION [None]
  - INCREASED TENDENCY TO BRUISE [None]
  - SWELLING [None]
